FAERS Safety Report 6437755-0 (Version None)
Quarter: 2009Q4

REPORT INFORMATION
  Report Type: 
  Country: None (occurrence: None)
  Receive Date: 20091112
  Receipt Date: 20091104
  Transmission Date: 20100525
  Serious: Yes (Other)
  Sender: FDA-Public Use
  Company Number: FR-JNJCH-2009029016

PATIENT
  Age: 57 Year
  Sex: Female

DRUGS (4)
  1. ACTIFED [Suspect]
     Indication: NASOPHARYNGITIS
     Dosage: TEXT:ONE TABLET PER DAY OS
     Route: 048
     Dates: start: 20091031, end: 20091031
  2. ACTIFED JOUR ET NUIT (NIGHT) [Suspect]
     Indication: NASOPHARYNGITIS
     Dosage: TEXT:ONE TABLET PER DAY OS
     Route: 048
     Dates: start: 20091031, end: 20091031
  3. EFFEXOR [Concomitant]
     Indication: FIBROMYALGIA
     Dosage: TEXT:ONE TABLET PER DAY
     Route: 048
  4. IMOVANE [Concomitant]
     Indication: INSOMNIA
     Dosage: TEXT:UNSPECIFIED
     Route: 065

REACTIONS (6)
  - DYSPNOEA [None]
  - HALLUCINATION [None]
  - HEADACHE [None]
  - NERVOUSNESS [None]
  - PALPITATIONS [None]
  - VERTIGO [None]
